FAERS Safety Report 13744366 (Version 1)
Quarter: 2017Q3

REPORT INFORMATION
  Report Type: Report from Study
  Country: US (occurrence: US)
  Receive Date: 20170712
  Receipt Date: 20170712
  Transmission Date: 20171127
  Serious: Yes (Disabling)
  Sender: FDA-Public Use
  Company Number: US-GILEAD-2017-0267246

PATIENT
  Age: 82 Year
  Sex: Female
  Weight: 84 kg

DRUGS (8)
  1. AMBRISENTAN [Suspect]
     Active Substance: AMBRISENTAN
     Indication: PULMONARY ARTERIAL HYPERTENSION
     Dosage: 5 MG, UNK
     Route: 048
     Dates: start: 20170228, end: 20170428
  2. COUMADIN [Concomitant]
     Active Substance: WARFARIN SODIUM
  3. DILTIAZEM. [Concomitant]
     Active Substance: DILTIAZEM
  4. LISINOPRIL. [Concomitant]
     Active Substance: LISINOPRIL
  5. BUSPIRONE [Concomitant]
     Active Substance: BUSPIRONE HYDROCHLORIDE
  6. FUROSEMIDE. [Concomitant]
     Active Substance: FUROSEMIDE
  7. METOPROLOL. [Concomitant]
     Active Substance: METOPROLOL
  8. LEVOTHYROXINE. [Concomitant]
     Active Substance: LEVOTHYROXINE

REACTIONS (8)
  - Abdominal discomfort [Unknown]
  - Dyspnoea [Recovered/Resolved]
  - Flushing [Recovered/Resolved]
  - Hypersensitivity [Unknown]
  - Face oedema [Recovered/Resolved]
  - Weight increased [Recovered/Resolved]
  - Oedema [Unknown]
  - Fluid retention [Not Recovered/Not Resolved]

NARRATIVE: CASE EVENT DATE: 201704
